FAERS Safety Report 7624295-6 (Version None)
Quarter: 2011Q3

REPORT INFORMATION
  Report Type: 
  Country: None (occurrence: None)
  Receive Date: 20110720
  Receipt Date: 20110708
  Transmission Date: 20111222
  Serious: Yes (Other)
  Sender: FDA-Public Use
  Company Number: CA-UCBSA-036901

PATIENT
  Sex: Female

DRUGS (11)
  1. FOLIC ACID [Concomitant]
  2. PANTOPRAZOLE SODIUM [Concomitant]
  3. GRAVOL TAB [Concomitant]
  4. ATIVAN [Concomitant]
  5. EFFEXOR [Concomitant]
  6. CALCIUM W/VITAMIN D [Concomitant]
  7. TYLENOL W/ CODEINE NO. 3 [Concomitant]
  8. TRAZODONE [Concomitant]
  9. QUETIAPINE [Concomitant]
  10. B6 [Concomitant]
  11. CIMZIA [Suspect]
     Indication: RHEUMATOID ARTHRITIS
     Dosage: LOADING DOSE
     Route: 058
     Dates: start: 20110613, end: 20110627

REACTIONS (6)
  - EPISTAXIS [None]
  - VULVOVAGINAL MYCOTIC INFECTION [None]
  - GINGIVAL BLEEDING [None]
  - ORAL FUNGAL INFECTION [None]
  - ARTHRALGIA [None]
  - EYE INFECTION [None]
